FAERS Safety Report 4930205-2 (Version None)
Quarter: 2006Q1

REPORT INFORMATION
  Report Type: 
  Country: None (occurrence: None)
  Receive Date: 20060228
  Receipt Date: 20060210
  Transmission Date: 20060701
  Serious: Yes (Death)
  Sender: FDA-Public Use
  Company Number: GB200602002417

PATIENT
  Age: 58 Year
  Sex: Female
  Weight: 50 kg

DRUGS (15)
  1. XIGRIS [Suspect]
     Indication: ABDOMINAL SEPSIS
     Dosage: 24 UG/KG/HR, INTRAVENOUS
     Route: 042
     Dates: start: 20051228, end: 20051228
  2. EPINEPHRINE [Concomitant]
  3. ATRACURIUM BESYLATE [Concomitant]
  4. DOBUTAMINE (DOBUTAMINE) [Concomitant]
  5. DOPEXAMINE (DOPEXAMINE) [Concomitant]
  6. FENTANYL [Concomitant]
  7. HYDROCORTISONE [Concomitant]
  8. NORADRENALINE (NOREPINEPHRINE) [Concomitant]
  9. PROPOFOL [Concomitant]
  10. VANCOMYCIN [Concomitant]
  11. CALCIUM CHLORIDE [Concomitant]
  12. GENTAMICIN [Concomitant]
  13. PANTOPRAZOLE SODIUM [Concomitant]
  14. MAGNESIUM (MAGNESIUM) [Concomitant]
  15. ATROPINE [Concomitant]

REACTIONS (4)
  - COLITIS ISCHAEMIC [None]
  - LUNG NEOPLASM MALIGNANT [None]
  - PNEUMONIA [None]
  - PULMONARY HAEMORRHAGE [None]
